FAERS Safety Report 6706557-X (Version None)
Quarter: 2010Q2

REPORT INFORMATION
  Report Type: 
  Country: None (occurrence: None)
  Receive Date: 20100503
  Receipt Date: 20100422
  Transmission Date: 20101027
  Serious: Yes (Hospitalization)
  Sender: FDA-Public Use
  Company Number: FR-ASTRAZENECA-2010SE18253

PATIENT
  Age: 58 Year
  Sex: Female

DRUGS (8)
  1. ATACAND [Suspect]
     Route: 048
     Dates: start: 20090101, end: 20100326
  2. ALDALIX [Interacting]
     Dosage: 50+20 MG ONE CAPSULE DAILY
     Route: 048
     Dates: start: 20090101, end: 20100326
  3. NEXEN [Interacting]
     Indication: BACK PAIN
     Route: 048
     Dates: start: 20100218, end: 20100304
  4. NEXEN [Interacting]
     Route: 048
     Dates: start: 20100304, end: 20100326
  5. LEVOTHYROX [Concomitant]
     Route: 048
     Dates: start: 20090101
  6. SEROPLEX [Concomitant]
     Route: 048
     Dates: start: 20090101
  7. BROMAZEPAM [Concomitant]
     Route: 048
     Dates: start: 20090101
  8. PREVISCAN [Concomitant]
     Route: 048
     Dates: start: 20100227

REACTIONS (2)
  - DRUG INTERACTION [None]
  - RENAL FAILURE [None]
